FAERS Safety Report 7340688-9 (Version None)
Quarter: 2011Q1

REPORT INFORMATION
  Report Type: 
  Country: None (occurrence: None)
  Receive Date: 20110309
  Receipt Date: 20110301
  Transmission Date: 20110831
  Serious: Yes (Other)
  Sender: FDA-Public Use
  Company Number: BR-ROCHE-762853

PATIENT
  Sex: Female
  Weight: 69 kg

DRUGS (15)
  1. SPIRONOLACTONE [Concomitant]
     Dosage: START DATE: LONG TIME AGO
  2. SERTRALINE [Concomitant]
     Indication: FIBROMYALGIA
     Dosage: START AND STOP: LONG TIME AGO
  3. AAS INFANTIL [Concomitant]
  4. DIAZEPAM [Suspect]
     Dosage: OTHER INDICATION: TO SLEEP
     Route: 042
     Dates: start: 20110223, end: 20110223
  5. LEVOZINE [Suspect]
     Route: 065
     Dates: start: 20090101
  6. CARBOLITIUM [Suspect]
     Route: 065
     Dates: start: 20090101
  7. CLONAZEPAM [Concomitant]
  8. ATENOLOL [Concomitant]
     Dosage: START: LONG TIME AGO
  9. DIAZEPAM [Suspect]
     Route: 042
     Dates: start: 20090101, end: 20090101
  10. LIPITOR [Suspect]
     Dosage: STOP: 2011
     Route: 065
     Dates: start: 20060101
  11. CARBAMAZEPINE [Concomitant]
     Indication: EPILEPSY
     Dosage: OTHER INDICATION: BACK PAIN
     Dates: start: 20060101
  12. CIMETIDINE [Concomitant]
  13. SUSTRATE [Concomitant]
  14. FUROSEMIDE [Concomitant]
     Dosage: START DATE: LONG TIME AGO
  15. CAPTOPRIL [Concomitant]
     Dosage: START: LONG TIME AGO. TAKEN WHEN OTHER DRUGS FOR HIGH BLOOD PRESSURE WERE INEFFECTIVE

REACTIONS (8)
  - MEMORY IMPAIRMENT [None]
  - MENTAL DISORDER [None]
  - WEIGHT INCREASED [None]
  - INSOMNIA [None]
  - LOSS OF CONSCIOUSNESS [None]
  - VISUAL IMPAIRMENT [None]
  - DIARRHOEA [None]
  - HYPERSENSITIVITY [None]
